FAERS Safety Report 8046557-3 (Version None)
Quarter: 2012Q1

REPORT INFORMATION
  Report Type: 
  Country: None (occurrence: None)
  Receive Date: 20120113
  Receipt Date: 20120110
  Transmission Date: 20120608
  Serious: No
  Sender: FDA-Public Use
  Company Number: US-MERCK-1112USA01848

PATIENT
  Age: 14 Year
  Sex: Female

DRUGS (2)
  1. SINGULAIR [Suspect]
     Indication: ECZEMA
     Route: 048
     Dates: start: 20110323, end: 20111010
  2. SINGULAIR [Suspect]
     Indication: ASTHMA
     Route: 048
     Dates: start: 20110323, end: 20111010

REACTIONS (2)
  - SUICIDAL IDEATION [None]
  - DRUG ADMINISTRATION ERROR [None]
